FAERS Safety Report 16912753 (Version 2)
Quarter: 2019Q4

REPORT INFORMATION
  Report Type: Report from Study
  Country: IT (occurrence: IT)
  Receive Date: 20191014
  Receipt Date: 20191226
  Transmission Date: 20200122
  Serious: Yes (Other)
  Sender: FDA-Public Use
  Company Number: IT-ACCORD-157398

PATIENT
  Age: 79 Year
  Sex: Male

DRUGS (6)
  1. FUROSEMIDE. [Suspect]
     Active Substance: FUROSEMIDE
     Indication: HYPERTENSION
     Dosage: LAST RECEIVED 04-JUN-2019
     Route: 048
     Dates: start: 20180604
  2. PRITORPLUS [Suspect]
     Active Substance: HYDROCHLOROTHIAZIDE\TELMISARTAN
     Indication: HYPERTENSION
     Dosage: 80 MG/12.5 MG TABLETS
     Route: 048
     Dates: start: 20180604, end: 20190604
  3. ALFUZOSIN [Concomitant]
     Active Substance: ALFUZOSIN
  4. AVODART [Concomitant]
     Active Substance: DUTASTERIDE
  5. KCL RETARD [Concomitant]
     Active Substance: POTASSIUM CHLORIDE
  6. METFORMIN [Concomitant]
     Active Substance: METFORMIN HYDROCHLORIDE

REACTIONS (3)
  - Hypokalaemia [Recovering/Resolving]
  - Hypertensive crisis [Recovering/Resolving]
  - Drug ineffective [Unknown]

NARRATIVE: CASE EVENT DATE: 20190604
